FAERS Safety Report 9102774 (Version 2)
Quarter: 2013Q1

REPORT INFORMATION
  Report Type: Spontaneous
  Country: FR (occurrence: FR)
  Receive Date: 20130219
  Receipt Date: 20130301
  Transmission Date: 20140127
  Serious: Yes (Hospitalization)
  Sender: FDA-Public Use
  Company Number: FR-JNJFOC-20130204714

PATIENT
  Age: 71 Year
  Sex: Female

DRUGS (9)
  1. IXPRIM [Suspect]
     Indication: MYALGIA
     Route: 048
     Dates: start: 20120912, end: 20120913
  2. TOPALGIC LP [Suspect]
     Indication: MYALGIA
     Route: 048
     Dates: start: 20120913, end: 20120919
  3. EFFERALGAN [Suspect]
     Indication: MYALGIA
     Route: 048
     Dates: start: 20120912, end: 20120913
  4. TRANSIPEG [Concomitant]
     Indication: CONSTIPATION
     Route: 048
     Dates: start: 20120915, end: 20120925
  5. LEXOMIL [Concomitant]
     Indication: SLEEP DISORDER
     Route: 048
  6. LASILIX [Concomitant]
     Indication: CARDIOMYOPATHY
     Route: 048
  7. INEXIUM [Concomitant]
     Indication: GASTRIC ULCER
     Route: 048
  8. AUGMENTIN [Concomitant]
     Indication: CHOLECYSTITIS
     Route: 048
     Dates: start: 20120915, end: 20120925
  9. ARIXTRA [Concomitant]
     Indication: PROPHYLAXIS
     Dosage: 2.5 MG - 0.5 MG
     Route: 058
     Dates: start: 20120913, end: 20120925

REACTIONS (6)
  - Liver injury [Recovered/Resolved]
  - Inflammation [Recovering/Resolving]
  - Nausea [Recovered/Resolved]
  - Hepatic enzyme increased [Recovered/Resolved]
  - Vomiting [Recovered/Resolved]
  - Pyrexia [Recovered/Resolved]
